FAERS Safety Report 9866414 (Version 2)
Quarter: 2014Q1

REPORT INFORMATION
  Report Type: Report from Study
  Country: CA (occurrence: CA)
  Receive Date: 20140204
  Receipt Date: 20140204
  Transmission Date: 20141002
  Serious: Yes (Other)
  Sender: FDA-Public Use
  Company Number: CA-ROCHE-1342096

PATIENT
  Age: 51 Year
  Sex: Female

DRUGS (15)
  1. RITUXAN [Suspect]
     Indication: RHEUMATOID ARTHRITIS
     Dosage: LAST DOSE RECEIVED 22/AUG/2013
     Route: 042
     Dates: start: 20080609
  2. ACETAMINOPHEN [Concomitant]
     Indication: PREMEDICATION
     Route: 048
     Dates: start: 20100108
  3. DIPHENHYDRAMINE HCL [Concomitant]
     Indication: PREMEDICATION
     Route: 048
     Dates: start: 20100108
  4. METHYLPREDNISOLONE [Concomitant]
     Indication: PREMEDICATION
     Route: 042
     Dates: start: 20100108
  5. NORVASC [Concomitant]
     Route: 065
  6. COVERSYL [Concomitant]
     Route: 065
  7. PREDNISONE [Concomitant]
     Dosage: WEANING OFF
     Route: 065
  8. PREDNISONE [Concomitant]
     Route: 065
  9. PLAQUENIL [Concomitant]
     Route: 065
  10. FERROUS GLUCONATE [Concomitant]
  11. VITAMIN C [Concomitant]
  12. LANSOPRAZOLE [Concomitant]
     Route: 065
  13. METRONIDAZOLE [Concomitant]
     Route: 065
  14. ONDANSETRON [Concomitant]
  15. ACTONEL [Concomitant]
     Route: 065

REACTIONS (5)
  - Bladder prolapse [Not Recovered/Not Resolved]
  - Clostridium difficile infection [Not Recovered/Not Resolved]
  - Urinary tract infection [Not Recovered/Not Resolved]
  - Diarrhoea [Unknown]
  - Nausea [Unknown]
